FAERS Safety Report 5721783-4 (Version None)
Quarter: 2008Q2

REPORT INFORMATION
  Report Type: 
  Country: None (occurrence: None)
  Receive Date: 20080429
  Receipt Date: 20080418
  Transmission Date: 20081010
  Serious: Yes (Death, Other)
  Sender: FDA-Public Use
  Company Number: TR-ROCHE-559902

PATIENT
  Sex: Male
  Weight: 80 kg

DRUGS (3)
  1. XELODA [Suspect]
     Route: 048
     Dates: start: 20080313, end: 20080327
  2. CAMPTO [Concomitant]
     Route: 042
     Dates: start: 20080313, end: 20080313
  3. ALTUZAN [Concomitant]
     Route: 042
     Dates: start: 20080313, end: 20080313

REACTIONS (6)
  - COLON CANCER METASTATIC [None]
  - DIARRHOEA [None]
  - FEBRILE NEUTROPENIA [None]
  - PANCYTOPENIA [None]
  - SEPSIS [None]
  - SEPTIC SHOCK [None]
